FAERS Safety Report 4333197-2 (Version None)
Quarter: 2004Q1

REPORT INFORMATION
  Report Type: 
  Country: None (occurrence: None)
  Receive Date: 20040330
  Receipt Date: 20040322
  Transmission Date: 20041129
  Serious: Yes (Hospitalization)
  Sender: FDA-Public Use
  Company Number: TPA2004A00368

PATIENT
  Age: 91 Year
  Sex: Female
  Weight: 62.5964 kg

DRUGS (5)
  1. ACTOS [Suspect]
     Indication: DIABETES MELLITUS NON-INSULIN-DEPENDENT
     Dosage: 30 MG, 1 IN 1 D, PER ORAL
     Route: 048
     Dates: start: 20030922
  2. VASOTEC [Concomitant]
  3. LOZOL [Concomitant]
  4. INDERAL [Concomitant]
  5. OSCAL+D (CALCIUM DE ^STADA^) [Concomitant]

REACTIONS (7)
  - DYSPEPSIA [None]
  - FATIGUE [None]
  - JOINT SWELLING [None]
  - OEDEMA PERIPHERAL [None]
  - SELF-MEDICATION [None]
  - SYNCOPE [None]
  - WEIGHT INCREASED [None]
